FAERS Safety Report 10276757 (Version 2)
Quarter: 2014Q3

REPORT INFORMATION
  Report Type: Spontaneous
  Country: IT (occurrence: IT)
  Receive Date: 20140703
  Receipt Date: 20140710
  Transmission Date: 20150326
  Serious: Yes (Other)
  Sender: FDA-Public Use
  Company Number: PHHY2014IT081800

PATIENT
  Age: 37 Year
  Sex: Female
  Weight: 50 kg

DRUGS (3)
  1. EDRONAX [Concomitant]
     Active Substance: REBOXETINE MESYLATE
     Indication: DEPRESSION
     Dosage: 4 MG, QD
     Route: 048
     Dates: start: 20140402
  2. MELORA [Concomitant]
     Indication: URINARY TRACT INFECTION
     Dosage: 4 G, UNK
     Route: 048
     Dates: start: 20140402
  3. GILENYA [Suspect]
     Active Substance: FINGOLIMOD HYDROCHLORIDE
     Indication: RELAPSING-REMITTING MULTIPLE SCLEROSIS
     Dosage: 0.5 MG, QD
     Route: 048
     Dates: start: 20111015

REACTIONS (3)
  - Abortion spontaneous [Unknown]
  - Vaginal haemorrhage [Unknown]
  - Maternal exposure during pregnancy [Unknown]

NARRATIVE: CASE EVENT DATE: 20140629
